FAERS Safety Report 11540119 (Version 2)
Quarter: 2015Q4

REPORT INFORMATION
  Report Type: Spontaneous
  Country: US (occurrence: US)
  Receive Date: 20150923
  Receipt Date: 20151120
  Transmission Date: 20160304
  Serious: Yes (Other)
  Sender: FDA-Public Use
  Company Number: US-AMGEN-USASP2015097428

PATIENT
  Age: 75 Year
  Sex: Female
  Weight: 75.74 kg

DRUGS (3)
  1. ATENOLOL. [Concomitant]
     Active Substance: ATENOLOL
     Dosage: 5 MG, DAILY
  2. PROCRIT [Suspect]
     Active Substance: ERYTHROPOIETIN
     Indication: CHRONIC MYELOID LEUKAEMIA
     Dosage: 40000 UNITS, EVERY 4-6 WEEKS
     Route: 058
     Dates: end: 20150812
  3. PROCRIT [Suspect]
     Active Substance: ERYTHROPOIETIN
     Dosage: 40000 UNITS, EVERY TWO WEEKS
     Route: 058
     Dates: start: 20150812

REACTIONS (2)
  - Off label use [Unknown]
  - Haemoglobin decreased [Unknown]

NARRATIVE: CASE EVENT DATE: 2015
